FAERS Safety Report 13117657 (Version 1)
Quarter: 2017Q1

REPORT INFORMATION
  Report Type: Spontaneous
  Country: JP (occurrence: JP)
  Receive Date: 20170116
  Receipt Date: 20170116
  Transmission Date: 20170428
  Serious: Yes (Hospitalization, Other)
  Sender: FDA-Public Use
  Company Number: JP-GLAXOSMITHKLINE-JP2016JPN191355

PATIENT
  Age: 79 Year
  Sex: Male
  Weight: 56 kg

DRUGS (5)
  1. RELVAR ELLIPTA [Concomitant]
     Active Substance: FLUTICASONE FUROATE\VILANTEROL TRIFENATATE
     Dosage: UNK
  2. VIDARABINE [Concomitant]
     Active Substance: VIDARABINE
     Dosage: UNK
     Dates: start: 20161213
  3. METHYCOBAL [Concomitant]
     Active Substance: METHYLCOBALAMIN
     Indication: HERPES ZOSTER
     Dosage: 1500 ?G, 1D
  4. NEUROTROPIN (JAPAN) [Concomitant]
     Indication: HERPES ZOSTER
     Dosage: 16 IU, 1D
  5. VALTREX [Suspect]
     Active Substance: VALACYCLOVIR HYDROCHLORIDE
     Indication: HERPES ZOSTER
     Dosage: 1000 MG, TID
     Route: 048
     Dates: start: 20161213, end: 20161217

REACTIONS (5)
  - Decreased appetite [Recovering/Resolving]
  - Renal impairment [Recovering/Resolving]
  - Hypophagia [Recovering/Resolving]
  - Vomiting [Recovering/Resolving]
  - Dehydration [Recovering/Resolving]

NARRATIVE: CASE EVENT DATE: 20161217
